FAERS Safety Report 17311304 (Version 1)
Quarter: 2020Q1

REPORT INFORMATION
  Report Type: Spontaneous
  Country: US (occurrence: US)
  Receive Date: 20200123
  Receipt Date: 20200123
  Transmission Date: 20200409
  Serious: No
  Sender: FDA-Public Use
  Company Number: US-ROCHE-2398514

PATIENT
  Sex: Female
  Weight: 40.41 kg

DRUGS (2)
  1. RITUXAN [Suspect]
     Active Substance: RITUXIMAB
     Indication: ARTHRITIS
     Dosage: YES
     Route: 065
     Dates: start: 201809
  2. RITUXAN [Suspect]
     Active Substance: RITUXIMAB
     Indication: SYSTEMIC SCLEROSIS PULMONARY

REACTIONS (6)
  - Throat irritation [Recovered/Resolved]
  - Intentional product use issue [Unknown]
  - Headache [Recovered/Resolved]
  - Malaise [Unknown]
  - Off label use [Unknown]
  - Paraesthesia ear [Recovered/Resolved]
